FAERS Safety Report 8052899-8 (Version None)
Quarter: 2012Q1

REPORT INFORMATION
  Report Type: 
  Country: None (occurrence: None)
  Receive Date: 20120118
  Receipt Date: 20120111
  Transmission Date: 20120608
  Serious: Yes (Life-Threatening, Other)
  Sender: FDA-Public Use
  Company Number: US-SANOFI-AVENTIS-2011SA078989

PATIENT
  Age: 99 Year
  Sex: Female

DRUGS (1)
  1. ELOXATIN [Suspect]
     Route: 041

REACTIONS (3)
  - CARDIO-RESPIRATORY ARREST [None]
  - BLOOD PRESSURE DECREASED [None]
  - DYSPNOEA [None]
